FAERS Safety Report 15321346 (Version 1)
Quarter: 2018Q3

REPORT INFORMATION
  Report Type: Spontaneous
  Country: US (occurrence: US)
  Receive Date: 20180827
  Receipt Date: 20180827
  Transmission Date: 20181010
  Serious: No
  Sender: FDA-Public Use
  Company Number: US-BIOGEN-2018BI00543453

PATIENT
  Age: 27 Year
  Sex: Female

DRUGS (1)
  1. SPINRAZA [Suspect]
     Active Substance: NUSINERSEN
     Indication: SPINAL MUSCULAR ATROPHY
     Route: 065

REACTIONS (5)
  - Dizziness [Unknown]
  - Post lumbar puncture syndrome [Recovered/Resolved]
  - Migraine [Recovered/Resolved]
  - Back pain [Unknown]
  - Nausea [Recovered/Resolved]
